FAERS Safety Report 5505416-8 (Version None)
Quarter: 2007Q4

REPORT INFORMATION
  Report Type: 
  Country: None (occurrence: None)
  Receive Date: 20071030
  Receipt Date: 20070920
  Transmission Date: 20080405
  Serious: No
  Sender: FDA-Public Use
  Company Number: 267725

PATIENT
  Age: 56 Year
  Sex: Female

DRUGS (4)
  1. LEVEMIR [Suspect]
     Indication: TYPE 1 DIABETES MELLITUS
     Dosage: SUBCUTANEOUS ; SUBCUTANEOUS ; 13 IU, QD, SUBCUTANEOUS
     Route: 058
     Dates: end: 20070910
  2. LEVEMIR [Suspect]
     Indication: TYPE 1 DIABETES MELLITUS
     Dosage: SUBCUTANEOUS ; SUBCUTANEOUS ; 13 IU, QD, SUBCUTANEOUS
     Route: 058
     Dates: start: 20070910, end: 20070916
  3. LEVEMIR [Suspect]
     Indication: TYPE 1 DIABETES MELLITUS
     Dosage: SUBCUTANEOUS ; SUBCUTANEOUS ; 13 IU, QD, SUBCUTANEOUS
     Route: 058
     Dates: start: 20070917
  4. HUMALOG /00030501/ (INSULIN) [Concomitant]

REACTIONS (2)
  - BLOOD GLUCOSE DECREASED [None]
  - BLOOD GLUCOSE INCREASED [None]
